FAERS Safety Report 6592856-1 (Version None)
Quarter: 2010Q1

REPORT INFORMATION
  Report Type: 
  Country: None (occurrence: None)
  Receive Date: 20100212
  Receipt Date: 20100129
  Transmission Date: 20100710
  Serious: Yes (Hospitalization, Other)
  Sender: FDA-Public Use
  Company Number: 2009SP035816

PATIENT
  Age: 54 Year
  Sex: Male
  Weight: 92 kg

DRUGS (7)
  1. ORGARAN [Suspect]
     Indication: ARRHYTHMIA
     Dosage: 250 IU;QH;IV
     Route: 042
     Dates: start: 20091008, end: 20091107
  2. ORGARAN [Suspect]
     Indication: ATRIAL FIBRILLATION
     Dosage: 250 IU;QH;IV
     Route: 042
     Dates: start: 20091008, end: 20091107
  3. ORGARAN [Suspect]
     Indication: HEPARIN-INDUCED THROMBOCYTOPENIA
     Dosage: 250 IU;QH;IV
     Route: 042
     Dates: start: 20091008, end: 20091107
  4. DOBUTAMINE [Concomitant]
  5. LASILIX [Concomitant]
  6. DIGOXIN [Concomitant]
  7. ALDACTONE [Concomitant]

REACTIONS (3)
  - CUTANEOUS LUPUS ERYTHEMATOSUS [None]
  - LOCALISED INFECTION [None]
  - STEVENS-JOHNSON SYNDROME [None]
